FAERS Safety Report 6768326-4 (Version None)
Quarter: 2010Q2

REPORT INFORMATION
  Report Type: 
  Country: None (occurrence: None)
  Receive Date: 20100610
  Receipt Date: 20100526
  Transmission Date: 20101027
  Serious: Yes (Other)
  Sender: FDA-Public Use
  Company Number: RU-1182019

PATIENT
  Sex: Male

DRUGS (1)
  1. SYSTANE (RHINARIS) EYE DROPS LOT# 0ACS1A EYE DROPS, LOT# UNKNOWN EYE D [Suspect]
     Dosage: OPHTHALMIC
     Route: 047
     Dates: start: 20100501, end: 20100501

REACTIONS (2)
  - CONJUNCTIVITIS VIRAL [None]
  - OCULAR HYPERAEMIA [None]
